FAERS Safety Report 5528275-6 (Version None)
Quarter: 2007Q4

REPORT INFORMATION
  Report Type: 
  Country: None (occurrence: None)
  Receive Date: 20071128
  Receipt Date: 20071119
  Transmission Date: 20080405
  Serious: Yes (Hospitalization)
  Sender: FDA-Public Use
  Company Number: FI-ASTRAZENECA-2007SE06231

PATIENT
  Age: 20406 Day
  Sex: Female

DRUGS (2)
  1. SEROQUEL [Suspect]
     Indication: INSOMNIA
     Route: 048
     Dates: start: 20071102, end: 20071103
  2. NAVELBINE [Suspect]
     Indication: UTERINE CANCER
     Route: 042
     Dates: start: 20071023, end: 20071030

REACTIONS (1)
  - STAPHYLOCOCCAL SEPSIS [None]
